FAERS Safety Report 6073433-8 (Version None)
Quarter: 2009Q1

REPORT INFORMATION
  Report Type: 
  Country: None (occurrence: None)
  Receive Date: 20090211
  Receipt Date: 20090204
  Transmission Date: 20090719
  Serious: Yes (Hospitalization)
  Sender: FDA-Public Use
  Company Number: FR-ASTRAZENECA-2009CG00321

PATIENT
  Age: 987 Month
  Sex: Female
  Weight: 54 kg

DRUGS (15)
  1. ATACAND [Suspect]
     Route: 048
     Dates: start: 20070101, end: 20081013
  2. RIVOTRIL [Suspect]
     Route: 048
     Dates: start: 20080930
  3. NOZINAN [Suspect]
     Route: 048
     Dates: start: 19780101, end: 20080930
  4. LAROXYL [Suspect]
     Route: 048
     Dates: end: 20080930
  5. LEXOMIL [Suspect]
     Route: 048
     Dates: start: 20070101
  6. ACETAMINOPHEN AND CODEINE PHOSPHATE [Suspect]
     Route: 048
     Dates: start: 20070101, end: 20081013
  7. VASTAREL [Suspect]
     Dates: end: 20081013
  8. SEROPLEX [Suspect]
     Route: 048
     Dates: start: 20080801
  9. SYMBICORT [Concomitant]
     Dates: start: 20070101
  10. OMEPRAZOLE [Concomitant]
     Dates: start: 20070101
  11. SINEMET [Concomitant]
     Route: 048
     Dates: start: 20080930, end: 20081011
  12. SINEMET [Concomitant]
     Route: 048
     Dates: start: 20081113
  13. ACTONEL [Concomitant]
     Dates: start: 20070101
  14. CACIT D3 [Concomitant]
     Dates: start: 20070101
  15. PREVISCAN [Concomitant]
     Dates: start: 20071201

REACTIONS (3)
  - EXTRAPYRAMIDAL DISORDER [None]
  - FALL [None]
  - ORTHOSTATIC HYPOTENSION [None]
